FAERS Safety Report 4486749-3 (Version None)
Quarter: 2004Q4

REPORT INFORMATION
  Report Type: 
  Country: None (occurrence: None)
  Receive Date: 20041022
  Receipt Date: 20041008
  Transmission Date: 20050328
  Serious: Yes (Hospitalization)
  Sender: FDA-Public Use
  Company Number: 2004234760US

PATIENT
  Age: 67 Year
  Sex: Female
  Weight: 56 kg

DRUGS (10)
  1. CAMPTOSAR [Suspect]
     Indication: SMALL CELL LUNG CANCER STAGE UNSPECIFIED
     Dosage: 86 MG, CYCLIC, IV
     Route: 042
     Dates: start: 20040804, end: 20040901
  2. CISPLATIN [Suspect]
     Indication: SMALL CELL LUNG CANCER STAGE UNSPECIFIED
     Dosage: 103 MG, CYCLIC, IV
     Route: 042
     Dates: start: 20040804, end: 20040901
  3. CLINICAL TRIAL PROCEDURE (CLINICAL TRIAL PROCEDURE) [Suspect]
     Indication: SMALL CELL LUNG CANCER STAGE UNSPECIFIED
     Dates: start: 20040804, end: 20040826
  4. GRANISETRON [Concomitant]
  5. VICODIN [Concomitant]
  6. REGLAN [Concomitant]
  7. CIPRO [Concomitant]
  8. FLAGYL [Concomitant]
  9. DIFLUCAN [Concomitant]
  10. PEPCID [Concomitant]

REACTIONS (2)
  - NAUSEA [None]
  - ORTHOSTATIC HYPOTENSION [None]
